FAERS Safety Report 6723703-2 (Version None)
Quarter: 2010Q2

REPORT INFORMATION
  Report Type: 
  Country: None (occurrence: None)
  Receive Date: 20100513
  Receipt Date: 20100503
  Transmission Date: 20101027
  Serious: Yes (Hospitalization)
  Sender: FDA-Public Use
  Company Number: AU-JNJFOC-20100501173

PATIENT
  Sex: Male

DRUGS (1)
  1. REMICADE [Suspect]
     Indication: BEHCET'S SYNDROME
     Route: 042

REACTIONS (1)
  - LISTERIA ENCEPHALITIS [None]
